FAERS Safety Report 24572860 (Version 1)
Quarter: 2024Q4

REPORT INFORMATION
  Report Type: Spontaneous
  Country: US (occurrence: US)
  Receive Date: 20241101
  Receipt Date: 20241101
  Transmission Date: 20250115
  Serious: No
  Sender: Tarsus Pharmaceuticals
  Company Number: US-TARSUS PHARMACEUTICALS-TSP-US-2024-000395

PATIENT
  Sex: Female

DRUGS (2)
  1. XDEMVY [Suspect]
     Active Substance: LOTILANER
     Indication: Product used for unknown indication
     Dosage: UNK
     Route: 047
  2. UNSPECIFIED INGREDIENT [Concomitant]
     Active Substance: UNSPECIFIED INGREDIENT
     Indication: Product used for unknown indication
     Dosage: UNK
     Route: 065

REACTIONS (1)
  - Dyspnoea [Unknown]
